FAERS Safety Report 4813898-X (Version None)
Quarter: 2005Q4

REPORT INFORMATION
  Report Type: 
  Country: None (occurrence: None)
  Receive Date: 20051028
  Receipt Date: 20050404
  Transmission Date: 20060501
  Serious: No
  Sender: FDA-Public Use
  Company Number: US-GLAXOSMITHKLINE-A0552631A

PATIENT
  Age: 49 Year
  Sex: Female

DRUGS (6)
  1. ADVAIR DISKUS 100/50 [Suspect]
     Indication: ASTHMA
     Dosage: 250PUFF TWICE PER DAY
     Route: 055
  2. NEXIUM [Concomitant]
  3. HYDROCHLOROTHIAZIDE [Concomitant]
  4. ALLEGRA [Concomitant]
  5. DIOVAN [Concomitant]
  6. NORVASC [Concomitant]

REACTIONS (1)
  - CANDIDIASIS [None]
